FAERS Safety Report 6099967-8 (Version None)
Quarter: 2009Q1

REPORT INFORMATION
  Report Type: 
  Country: None (occurrence: None)
  Receive Date: 20090303
  Receipt Date: 20090223
  Transmission Date: 20090719
  Serious: Yes (Other)
  Sender: FDA-Public Use
  Company Number: PHHO2009GB02621

PATIENT
  Sex: Male

DRUGS (3)
  1. ZOLEDRONIC ACID [Suspect]
     Indication: METASTASES TO BONE
     Dosage: 4 MG, UNK
     Route: 042
     Dates: end: 20081101
  2. VITAMIN D [Concomitant]
  3. CALCIUM [Concomitant]

REACTIONS (4)
  - BLOOD PHOSPHORUS DECREASED [None]
  - MUSCULAR WEAKNESS [None]
  - NEURALGIA [None]
  - PARAESTHESIA [None]
